FAERS Safety Report 4972895-4 (Version None)
Quarter: 2006Q2

REPORT INFORMATION
  Report Type: 
  Country: None (occurrence: None)
  Receive Date: 20060414
  Receipt Date: 20060404
  Transmission Date: 20061013
  Serious: Yes (Death, Hospitalization)
  Sender: FDA-Public Use
  Company Number: FR-BRISTOL-MYERS SQUIBB COMPANY-13337779

PATIENT
  Age: 79 Year
  Sex: Female

DRUGS (5)
  1. COUMADIN [Suspect]
     Route: 048
     Dates: end: 20060222
  2. CORDARONE [Concomitant]
  3. LASILIX [Concomitant]
  4. ALDACTONE [Concomitant]
  5. TRIATEC [Concomitant]

REACTIONS (5)
  - BRAIN HERNIATION [None]
  - FALL [None]
  - HAEMATOMA [None]
  - HAEMORRHAGE INTRACRANIAL [None]
  - INTRACRANIAL PRESSURE INCREASED [None]
